FAERS Safety Report 19755870 (Version 1)
Quarter: 2021Q3

REPORT INFORMATION
  Report Type: Report from Study
  Country: CA (occurrence: CA)
  Receive Date: 20210827
  Receipt Date: 20210827
  Transmission Date: 20211014
  Serious: Yes (Hospitalization, Disabling, Other)
  Sender: FDA-Public Use
  Company Number: CA-SA-2021SA123928

PATIENT
  Age: 89 Year
  Sex: Female

DRUGS (19)
  1. METHOTREXATE. [Concomitant]
     Active Substance: METHOTREXATE
  2. AMLODIPINE [Concomitant]
     Active Substance: AMLODIPINE BESYLATE
  3. HYDROCHLOROTHIAZIDE. [Concomitant]
     Active Substance: HYDROCHLOROTHIAZIDE
  4. METHOTREXATE. [Concomitant]
     Active Substance: METHOTREXATE
  5. GABAPENTIN. [Concomitant]
     Active Substance: GABAPENTIN
  6. HYDROCHLOROTHIAZIDE. [Concomitant]
     Active Substance: HYDROCHLOROTHIAZIDE
  7. ATORVASTATIN [Concomitant]
     Active Substance: ATORVASTATIN
  8. TERAZOSIN [Concomitant]
     Active Substance: TERAZOSIN HYDROCHLORIDE
  9. OMEPRAZOLE. [Concomitant]
     Active Substance: OMEPRAZOLE
  10. FOSINOPRIL [Concomitant]
     Active Substance: FOSINOPRIL
  11. GABAPENTIN. [Concomitant]
     Active Substance: GABAPENTIN
  12. NOVOGESIC [PARACETAMOL] [Concomitant]
  13. TERAZOSIN [Concomitant]
     Active Substance: TERAZOSIN HYDROCHLORIDE
  14. SARILUMAB [Suspect]
     Active Substance: SARILUMAB
     Indication: RHEUMATOID ARTHRITIS
     Dosage: 200 MG, (TWICE A MONTH)
     Route: 058
     Dates: start: 20170501
  15. ATORVASTATIN [Concomitant]
     Active Substance: ATORVASTATIN
  16. FOLIC ACID. [Concomitant]
     Active Substance: FOLIC ACID
  17. FOSINOPRIL [Concomitant]
     Active Substance: FOSINOPRIL
  18. OMEPRAZOLE. [Concomitant]
     Active Substance: OMEPRAZOLE
  19. FOLIC ACID. [Concomitant]
     Active Substance: FOLIC ACID

REACTIONS (5)
  - Visual impairment [Not Recovered/Not Resolved]
  - Cellulitis [Recovered/Resolved]
  - Macular degeneration [Not Recovered/Not Resolved]
  - Walking aid user [Unknown]
  - Musculoskeletal disorder [Recovered/Resolved]

NARRATIVE: CASE EVENT DATE: 20210403
